FAERS Safety Report 4890055-2 (Version None)
Quarter: 2006Q1

REPORT INFORMATION
  Report Type: 
  Country: None (occurrence: None)
  Receive Date: 20060120
  Receipt Date: 20060104
  Transmission Date: 20060701
  Serious: Yes (Hospitalization)
  Sender: FDA-Public Use
  Company Number: DSA_27612_2006

PATIENT
  Age: 85 Year
  Sex: Female

DRUGS (4)
  1. LORAZEPAM [Suspect]
     Dosage: DF ONCE PO
     Route: 048
     Dates: start: 20060103, end: 20060103
  2. RISPERDAL [Suspect]
     Dosage: DF ONCE PO
     Route: 048
     Dates: start: 20060103, end: 20060103
  3. SAROTEN ^BAYER VITAL^ [Suspect]
     Dosage: DF ONCE PO
     Route: 048
     Dates: start: 20060103, end: 20060103
  4. ALCOHOL [Suspect]
     Dosage: DF ONCE PO
     Route: 048
     Dates: start: 20060103, end: 20060103

REACTIONS (6)
  - ALCOHOL USE [None]
  - ASPIRATION [None]
  - COMA [None]
  - HYPOTENSION [None]
  - MULTIPLE DRUG OVERDOSE INTENTIONAL [None]
  - SUICIDE ATTEMPT [None]
